FAERS Safety Report 4980745-5 (Version None)
Quarter: 2006Q2

REPORT INFORMATION
  Report Type: 
  Country: None (occurrence: None)
  Receive Date: 20060424
  Receipt Date: 20030702
  Transmission Date: 20061013
  Serious: Yes (Disabling, Other)
  Sender: FDA-Public Use
  Company Number: US-MERCK-0307USA00235

PATIENT
  Age: 31 Year
  Sex: Male
  Weight: 93 kg

DRUGS (4)
  1. VIOXX [Suspect]
     Indication: ROTATOR CUFF SYNDROME
     Route: 048
     Dates: start: 20010605, end: 20020601
  2. VIOXX [Suspect]
     Route: 048
     Dates: start: 20010605, end: 20020601
  3. VICODIN [Concomitant]
     Route: 065
  4. CELEBREX [Concomitant]
     Route: 065

REACTIONS (22)
  - ANXIETY [None]
  - ASTIGMATISM [None]
  - BLINDNESS UNILATERAL [None]
  - EMOTIONAL DISTRESS [None]
  - HYPERCOAGULATION [None]
  - HYPERTENSION [None]
  - LIMB INJURY [None]
  - MIGRAINE [None]
  - MIGRAINE WITH AURA [None]
  - MULTIPLE SCLEROSIS [None]
  - MYELOPROLIFERATIVE DISORDER [None]
  - MYOPIA [None]
  - NERVE INJURY [None]
  - OPTIC ATROPHY [None]
  - OPTIC NEURITIS [None]
  - PAPILLOEDEMA [None]
  - PLATELET COUNT INCREASED [None]
  - RETINAL HAEMORRHAGE [None]
  - RETINAL VEIN OCCLUSION [None]
  - RETINAL VEIN THROMBOSIS [None]
  - ROTATOR CUFF SYNDROME [None]
  - SHOULDER PAIN [None]
